FAERS Safety Report 5527527-3 (Version None)
Quarter: 2007Q4

REPORT INFORMATION
  Report Type: 
  Country: None (occurrence: None)
  Receive Date: 20071121
  Receipt Date: 20071106
  Transmission Date: 20080405
  Serious: Yes (Other)
  Sender: FDA-Public Use
  Company Number: B0495803A

PATIENT
  Age: 41 Year
  Sex: Female

DRUGS (6)
  1. ASPIRIN [Suspect]
     Dosage: 81 MG/ PER DAY / ORAL
     Route: 048
  2. PREDNISONE [Suspect]
     Dosage: 10 MG / PER DAY / ORAL
     Route: 048
  3. CALCIUM SALT (FORMULATION UNKNOWN) (CALCIUM SALT) [Suspect]
     Dosage: 1000 MG / PER DAY / ORAL
     Route: 048
  4. LOW MW HEPARIN (FORMULATION UNKNOWN) (LOW MW HEPARIN) [Suspect]
     Dosage: 30 MG / TWICE PER DAY / ORAL
     Route: 048
  5. PROGESTERONE (FORMULATION UNKNOWN) (PROGESTERONE) [Suspect]
  6. IMMUNE GLOBULIN INTRAVENOUS (HUMAN) [Suspect]
     Dosage: 400 MG/KG / CYCLIC / INTRAVENOUS
     Route: 042

REACTIONS (8)
  - ABORTION SPONTANEOUS [None]
  - CAESAREAN SECTION [None]
  - DRUG EXPOSURE DURING PREGNANCY [None]
  - HAEMORRHAGE [None]
  - INTRA-UTERINE DEATH [None]
  - PLACENTAL DISORDER [None]
  - PREMATURE BABY [None]
  - TWIN PREGNANCY [None]
